FAERS Safety Report 26099175 (Version 2)
Quarter: 2025Q4

REPORT INFORMATION
  Report Type: Report from Study
  Country: CA (occurrence: CA)
  Receive Date: 20251128
  Receipt Date: 20251217
  Transmission Date: 20260117
  Serious: Yes (Other)
  Sender: CELLTRION
  Company Number: CA-CELLTRION INC.-2024CA027107

PATIENT

DRUGS (1)
  1. USTEKINUMAB [Suspect]
     Active Substance: USTEKINUMAB
     Indication: Psoriasis
     Dosage: 90 MG Q 12 WEEKS
     Route: 058
     Dates: start: 20241230

REACTIONS (7)
  - Skin ulcer [Unknown]
  - Thrombosis [Unknown]
  - Diabetes mellitus [Unknown]
  - Localised infection [Recovered/Resolved]
  - Cyst [Unknown]
  - Intentional product use issue [Unknown]
  - Product dose omission issue [Unknown]

NARRATIVE: CASE EVENT DATE: 20250529
